FAERS Safety Report 7038439-0 (Version None)
Quarter: 2010Q4

REPORT INFORMATION
  Report Type: 
  Country: None (occurrence: None)
  Receive Date: 20101011
  Receipt Date: 20100621
  Transmission Date: 20110411
  Serious: Yes (Other)
  Sender: FDA-Public Use
  Company Number: US-PFIZER INC-2010077925

PATIENT
  Age: 52 Year
  Sex: Male

DRUGS (2)
  1. NEURONTIN [Suspect]
     Indication: BACK PAIN
     Dosage: 300 MG, DAILY
     Route: 048
     Dates: start: 20100601, end: 20100601
  2. NORCO [Concomitant]
     Dosage: UNK

REACTIONS (6)
  - DIZZINESS [None]
  - HEADACHE [None]
  - HYPERACUSIS [None]
  - HYPOAESTHESIA FACIAL [None]
  - TINNITUS [None]
  - VISION BLURRED [None]
